APPROVED DRUG PRODUCT: SELZENTRY
Active Ingredient: MARAVIROC
Strength: 300MG
Dosage Form/Route: TABLET;ORAL
Application: N022128 | Product #002 | TE Code: AB
Applicant: VIIV HEALTHCARE CO
Approved: Aug 6, 2007 | RLD: Yes | RS: Yes | Type: RX